FAERS Safety Report 15937737 (Version 1)
Quarter: 2019Q1

REPORT INFORMATION
  Report Type: Spontaneous
  Country: US (occurrence: US)
  Receive Date: 20190208
  Receipt Date: 20190208
  Transmission Date: 20190417
  Serious: No
  Sender: FDA-Public Use
  Company Number: US-AEGERION PHARMACEUTICAL, INC-AEGR003928

PATIENT
  Age: 61 Year
  Sex: Female
  Weight: 61.22 kg

DRUGS (11)
  1. NORTRIPTYLINE [Concomitant]
     Active Substance: NORTRIPTYLINE
     Indication: PRODUCT USED FOR UNKNOWN INDICATION
  2. MYALEPT [Suspect]
     Active Substance: METRELEPTIN
     Indication: CONGENITAL GENERALISED LIPODYSTROPHY
     Dosage: 2.5 MG, QD
     Route: 058
     Dates: start: 20180727, end: 201809
  3. MYALEPT [Suspect]
     Active Substance: METRELEPTIN
     Dosage: UNK
     Dates: start: 20181001
  4. TYLENOL PM [Concomitant]
     Active Substance: ACETAMINOPHEN\DIPHENHYDRAMINE
     Indication: PRODUCT USED FOR UNKNOWN INDICATION
  5. TRICOR                             /00090101/ [Concomitant]
     Active Substance: ADENOSINE
     Indication: PRODUCT USED FOR UNKNOWN INDICATION
  6. RESTASIS [Concomitant]
     Active Substance: CYCLOSPORINE
     Indication: PRODUCT USED FOR UNKNOWN INDICATION
  7. SYNTHROID [Concomitant]
     Active Substance: LEVOTHYROXINE SODIUM
     Indication: PRODUCT USED FOR UNKNOWN INDICATION
  8. MYALEPT [Suspect]
     Active Substance: METRELEPTIN
     Dosage: 1.25 MG, QD
     Route: 058
     Dates: start: 201809
  9. SIMVASTATIN. [Concomitant]
     Active Substance: SIMVASTATIN
     Indication: PRODUCT USED FOR UNKNOWN INDICATION
  10. OMEPRAZOLE. [Concomitant]
     Active Substance: OMEPRAZOLE
     Indication: PRODUCT USED FOR UNKNOWN INDICATION
  11. IBUPROFEN. [Concomitant]
     Active Substance: IBUPROFEN
     Indication: PRODUCT USED FOR UNKNOWN INDICATION

REACTIONS (24)
  - Increased appetite [Unknown]
  - Fatigue [Unknown]
  - Blood glucose decreased [Unknown]
  - Dizziness [Unknown]
  - Oropharyngeal pain [Unknown]
  - Injection site mass [Unknown]
  - Eye swelling [Unknown]
  - Needle issue [Unknown]
  - Therapy cessation [Recovered/Resolved]
  - Skin irritation [Unknown]
  - Somnolence [Unknown]
  - Vomiting [Recovered/Resolved]
  - Rash [Unknown]
  - Rash pruritic [Unknown]
  - Ear pain [Unknown]
  - Injection site erythema [Unknown]
  - Arthropod bite [Unknown]
  - Discharge [Unknown]
  - Pain [Unknown]
  - Nausea [Recovered/Resolved]
  - Paraesthesia oral [Unknown]
  - Injection site pain [Unknown]
  - Injection site scar [Unknown]
  - Injection site pruritus [Unknown]

NARRATIVE: CASE EVENT DATE: 2018
